FAERS Safety Report 7371477-7 (Version None)
Quarter: 2011Q1

REPORT INFORMATION
  Report Type: 
  Country: None (occurrence: None)
  Receive Date: 20110322
  Receipt Date: 20110322
  Transmission Date: 20110831
  Serious: Yes (Hospitalization, Other)
  Sender: FDA-Public Use
  Company Number: None

PATIENT
  Age: 53 Year
  Sex: Male
  Weight: 108.8633 kg

DRUGS (2)
  1. ADDERALL XR 60 [Suspect]
     Indication: DEPRESSION
     Dosage: 60 MG DAILY PO
     Route: 048
  2. ADDERALL XR 60 [Suspect]
     Indication: DISTURBANCE IN ATTENTION
     Dosage: 60 MG DAILY PO
     Route: 048

REACTIONS (14)
  - CONFUSIONAL STATE [None]
  - DELUSION [None]
  - ECONOMIC PROBLEM [None]
  - PRODUCT QUALITY ISSUE [None]
  - FEAR [None]
  - SPEECH DISORDER [None]
  - HALLUCINATION [None]
  - NEUROTOXICITY [None]
  - PSYCHOTIC DISORDER [None]
  - LOSS OF EMPLOYMENT [None]
  - PARANOIA [None]
  - ANGER [None]
  - DRUG DEPENDENCE [None]
  - ANXIETY [None]
